FAERS Safety Report 8221743-8 (Version None)
Quarter: 2012Q1

REPORT INFORMATION
  Report Type: 
  Country: None (occurrence: None)
  Receive Date: 20120320
  Receipt Date: 20120320
  Transmission Date: 20120608
  Serious: Yes (Hospitalization)
  Sender: FDA-Public Use
  Company Number: None

PATIENT
  Age: 45 Year
  Sex: Female
  Weight: 90 kg

DRUGS (1)
  1. ACYCLOVIR [Suspect]
     Indication: MENINGITIS VIRAL
     Dosage: 1000 MG
     Route: 042
     Dates: start: 20120317, end: 20120318

REACTIONS (3)
  - DISCOMFORT [None]
  - PARAESTHESIA [None]
  - HALLUCINATIONS, MIXED [None]
